FAERS Safety Report 9015424 (Version 3)
Quarter: 2014Q4

REPORT INFORMATION
  Report Type: Spontaneous
  Country: US (occurrence: None)
  Receive Date: 20130102
  Receipt Date: 20141216
  Transmission Date: 20150529
  Serious: Yes (Other)
  Sender: FDA-Public Use
  Company Number: JPI-P-027079

PATIENT
  Age: 43 Year
  Sex: Male

DRUGS (1)
  1. XYREM [Suspect]
     Active Substance: SODIUM OXYBATE
     Indication: NARCOLEPSY
     Dosage: (2.25 GM, 2 IN 1 D)
     Route: 048
     Dates: start: 20120521, end: 20120905

REACTIONS (2)
  - Exostosis [None]
  - Ankle operation [None]

NARRATIVE: CASE EVENT DATE: 20121207
